FAERS Safety Report 10384616 (Version 1)
Quarter: 2014Q3

REPORT INFORMATION
  Report Type: Spontaneous
  Country: US (occurrence: None)
  Receive Date: 20140813
  Receipt Date: 20140813
  Transmission Date: 20150326
  Serious: No
  Sender: FDA-Public Use
  Company Number: None

PATIENT
  Age: 72 Year
  Sex: Female
  Weight: 58.97 kg

DRUGS (12)
  1. BABY ASPIRIN [Concomitant]
     Active Substance: ASPIRIN
  2. VITAMIN D3 [Concomitant]
     Active Substance: CHOLECALCIFEROL
  3. ARTHRITIS STRENGTH TYLENOL [Concomitant]
  4. VESICARE [Concomitant]
     Active Substance: SOLIFENACIN SUCCINATE
  5. LOVASTATIN. [Concomitant]
     Active Substance: LOVASTATIN
  6. TROZDONE [Concomitant]
  7. MULTIPLE VITAMIN [Concomitant]
     Active Substance: VITAMINS
  8. ABILIFY [Suspect]
     Active Substance: ARIPIPRAZOLE
     Indication: DEPRESSION
     Dosage: 1 PILL A DAY ONCE A DAY AM BY MOUTH
     Route: 048
     Dates: end: 201308
  9. GLIMPIRID [Concomitant]
  10. LEVOTHYROXINE [Concomitant]
     Active Substance: LEVOTHYROXINE
  11. CLOMAZEPAM [Concomitant]
  12. VENLAFAXINE [Concomitant]
     Active Substance: VENLAFAXINE HYDROCHLORIDE

REACTIONS (8)
  - Asthenia [None]
  - Tongue disorder [None]
  - Gait disturbance [None]
  - Decreased appetite [None]
  - Aphagia [None]
  - Wheelchair user [None]
  - Dyskinesia [None]
  - Weight decreased [None]

NARRATIVE: CASE EVENT DATE: 20130901
